FAERS Safety Report 18648981 (Version 1)
Quarter: 2020Q4

REPORT INFORMATION
  Report Type: Spontaneous
  Country: US (occurrence: US)
  Receive Date: 20201222
  Receipt Date: 20201222
  Transmission Date: 20210114
  Serious: No
  Sender: FDA-Public Use
  Company Number: None

PATIENT
  Age: 79 Year
  Sex: Male
  Weight: 82.35 kg

DRUGS (13)
  1. SYMBICORT [Concomitant]
     Active Substance: BUDESONIDE\FORMOTEROL FUMARATE DIHYDRATE
  2. LEVOTHYROXINE. [Concomitant]
     Active Substance: LEVOTHYROXINE
  3. JANUVIA [Concomitant]
     Active Substance: SITAGLIPTIN PHOSPHATE
  4. SIMVASTATIN. [Concomitant]
     Active Substance: SIMVASTATIN
  5. LORATADINE. [Concomitant]
     Active Substance: LORATADINE
  6. NOVOLOG [Concomitant]
     Active Substance: INSULIN ASPART
  7. FLONASE [Concomitant]
     Active Substance: FLUTICASONE PROPIONATE
  8. EVEROLIMUS. [Suspect]
     Active Substance: EVEROLIMUS
     Indication: SMALL INTESTINE CARCINOMA
     Route: 048
  9. VELTASSA [Concomitant]
     Active Substance: PATIROMER
  10. OXYBUTYNIN. [Concomitant]
     Active Substance: OXYBUTYNIN CHLORIDE
  11. MONTELUKAST [Concomitant]
     Active Substance: MONTELUKAST SODIUM
  12. GLIPIZIDE. [Concomitant]
     Active Substance: GLIPIZIDE
  13. ASPIRIN. [Concomitant]
     Active Substance: ASPIRIN

REACTIONS (3)
  - Joint swelling [None]
  - Skin discolouration [None]
  - Peripheral swelling [None]

NARRATIVE: CASE EVENT DATE: 20201214
